FAERS Safety Report 14552889 (Version 2)
Quarter: 2018Q2

REPORT INFORMATION
  Report Type: Report from Study
  Country: JP (occurrence: JP)
  Receive Date: 20180220
  Receipt Date: 20180625
  Transmission Date: 20180711
  Serious: Yes (Death, Other)
  Sender: FDA-Public Use
  Company Number: JP-ACTELION-A-CH2017-154640

PATIENT
  Age: 63 Year
  Sex: Female

DRUGS (21)
  1. SPIRONOLACTON [Concomitant]
     Active Substance: SPIRONOLACTONE
  2. FEBURIC [Concomitant]
     Active Substance: FEBUXOSTAT
  3. OPSUMIT [Suspect]
     Active Substance: MACITENTAN
     Indication: PULMONARY ARTERIAL HYPERTENSION
     Dosage: 10 MG, OD
     Route: 048
     Dates: start: 20151113, end: 20171103
  4. FERROUS CITRATE NA [Concomitant]
     Active Substance: SODIUM FERROUS CITRATE
  5. OXYGEN. [Concomitant]
     Active Substance: OXYGEN
  6. SOTACOR [Concomitant]
     Active Substance: SOTALOL HYDROCHLORIDE
  7. GASMOTIN [Concomitant]
     Active Substance: MOSAPRIDE CITRATE
  8. K-SUPPLY [Concomitant]
     Active Substance: POTASSIUM CHLORIDE
  9. FOSAMAC [Concomitant]
     Active Substance: ALENDRONATE SODIUM
  10. BEZATOL [Concomitant]
     Active Substance: BEZAFIBRATE
  11. LOPERAMIDE [Concomitant]
     Active Substance: LOPERAMIDE
  12. FUROSEMIDE. [Concomitant]
     Active Substance: FUROSEMIDE
  13. PREDONINE [Concomitant]
     Active Substance: PREDNISOLONE
  14. REBAMIPIDE [Concomitant]
     Active Substance: REBAMIPIDE
  15. MUCOSOLVAN L [Concomitant]
     Active Substance: AMBROXOL HYDROCHLORIDE
  16. MAINTATE [Concomitant]
     Active Substance: BISOPROLOL FUMARATE
  17. WARFARIN [Concomitant]
     Active Substance: WARFARIN
  18. METHYCOBAL [Concomitant]
     Active Substance: METHYLCOBALAMIN
  19. REVATIO [Concomitant]
     Active Substance: SILDENAFIL CITRATE
  20. VANARL N [Concomitant]
  21. QUAZEPAM. [Concomitant]
     Active Substance: QUAZEPAM

REACTIONS (4)
  - Pulmonary hypertension [Fatal]
  - Bronchitis [Recovered/Resolved]
  - Cardio-respiratory arrest [Fatal]
  - Cardiac failure chronic [Recovered/Resolved]

NARRATIVE: CASE EVENT DATE: 20160525
